FAERS Safety Report 7374628-3 (Version None)
Quarter: 2011Q1

REPORT INFORMATION
  Report Type: 
  Country: None (occurrence: None)
  Receive Date: 20110325
  Receipt Date: 20100624
  Transmission Date: 20110831
  Serious: No
  Sender: FDA-Public Use
  Company Number: US-MYLANLABS-2010S1008935

PATIENT
  Age: 52 Year
  Sex: Male
  Weight: 83.92 kg

DRUGS (16)
  1. FENTANYL-100 [Suspect]
     Indication: BACK PAIN
     Dosage: CHANGED PATCHES Q3D
     Route: 062
     Dates: start: 20100504, end: 20100501
  2. FENTANYL-100 [Suspect]
     Dosage: CHANGED PATCHES Q3D
     Route: 062
     Dates: start: 20100501, end: 20100501
  3. WELLBUTRIN [Concomitant]
     Route: 048
  4. BACLOFEN [Concomitant]
     Indication: MUSCLE SPASMS
  5. FENTANYL-100 [Suspect]
     Dosage: CHANGED PATCHES Q3D
     Route: 062
     Dates: start: 20100501
  6. NORCO [Concomitant]
     Indication: BREAKTHROUGH PAIN
     Route: 048
  7. TAMSULOSIN HYDROCHLORIDE [Concomitant]
     Indication: PROSTATOMEGALY
     Route: 048
  8. GABAPENTIN [Concomitant]
     Route: 048
  9. XANAX [Concomitant]
     Indication: INSOMNIA
     Route: 048
  10. IBUPROFEN [Concomitant]
  11. FENTANYL-100 [Suspect]
     Dosage: CHANGED PATCHES Q3D
     Route: 062
     Dates: start: 20100501
  12. TESTINON [Concomitant]
     Route: 061
  13. FENTANYL-100 [Suspect]
     Indication: PAIN IN EXTREMITY
     Dosage: CHANGED PATCHES Q3D
     Route: 062
     Dates: start: 20100504, end: 20100501
  14. FENTANYL-100 [Suspect]
     Dosage: CHANGED PATCHES Q3D
     Route: 062
     Dates: start: 20100501, end: 20100501
  15. AVODART [Concomitant]
     Route: 048
  16. OMEPRAZOLE [Concomitant]
     Indication: GASTROOESOPHAGEAL REFLUX DISEASE
     Route: 048

REACTIONS (2)
  - PAROSMIA [None]
  - DYSGEUSIA [None]
